FAERS Safety Report 10055818 (Version 1)
Quarter: 2014Q2

REPORT INFORMATION
  Report Type: Spontaneous
  Country: US (occurrence: US)
  Receive Date: 20140403
  Receipt Date: 20140403
  Transmission Date: 20141212
  Serious: Yes (Other)
  Sender: FDA-Public Use
  Company Number: US-PERRIGO-14US003136

PATIENT
  Age: 15 Year
  Sex: Female
  Weight: 49.89 kg

DRUGS (3)
  1. ACETAMINOPHEN 500MG 484 [Suspect]
     Indication: HEADACHE
     Dosage: 1000 MG, SINGLE
     Route: 048
     Dates: start: 20140323, end: 20140323
  2. ACETAMINOPHEN 500MG 484 [Suspect]
     Indication: MUSCLE SPASMS
     Dosage: 1000 MG, SINGLE
     Route: 048
     Dates: start: 20140226, end: 20140326
  3. TAZORAC [Concomitant]
     Indication: ACNE
     Dosage: UNK, UNK
     Route: 061
     Dates: start: 201309

REACTIONS (8)
  - Anaphylactic reaction [Recovered/Resolved]
  - Dyspnoea [Recovered/Resolved]
  - Swelling face [Recovered/Resolved]
  - Paraesthesia [Recovered/Resolved]
  - Urticaria [Recovered/Resolved]
  - Pruritus [Recovered/Resolved]
  - Sneezing [Recovered/Resolved]
  - Lacrimation increased [Recovered/Resolved]
